FAERS Safety Report 16211312 (Version 1)
Quarter: 2019Q2

REPORT INFORMATION
  Report Type: Spontaneous
  Country: US (occurrence: US)
  Receive Date: 20190417
  Receipt Date: 20190417
  Transmission Date: 20190711
  Serious: Yes (Other)
  Sender: FDA-Public Use
  Company Number: None

PATIENT
  Age: 61 Year
  Sex: Female
  Weight: 60.75 kg

DRUGS (5)
  1. ZANTAC [Concomitant]
     Active Substance: RANITIDINE HYDROCHLORIDE
  2. ESTRACE [Concomitant]
     Active Substance: ESTRADIOL
  3. LISINOPRIL. [Concomitant]
     Active Substance: LISINOPRIL
  4. EMGALITY [Suspect]
     Active Substance: GALCANEZUMAB-GNLM
     Indication: MIGRAINE
     Dosage: ?          QUANTITY:2 INJECTION(S);OTHER ROUTE:INJECTION?
     Dates: start: 20181212, end: 20181212
  5. MULTI VITAMIN [Concomitant]
     Active Substance: VITAMINS

REACTIONS (10)
  - Anxiety [None]
  - Vertigo [None]
  - Chills [None]
  - Hyperhidrosis [None]
  - Hot flush [None]
  - Heart rate increased [None]
  - Haematuria [None]
  - Palpitations [None]
  - Cystitis [None]
  - Renal cyst [None]

NARRATIVE: CASE EVENT DATE: 20181212
